FAERS Safety Report 7715509-2 (Version None)
Quarter: 2011Q3

REPORT INFORMATION
  Report Type: 
  Country: None (occurrence: None)
  Receive Date: 20110822
  Receipt Date: 20110810
  Transmission Date: 20111222
  Serious: Yes (Hospitalization)
  Sender: FDA-Public Use
  Company Number: 1000022943

PATIENT
  Age: 1 Day
  Sex: Female
  Weight: 2.67 kg

DRUGS (2)
  1. PROTHIADEN [Suspect]
     Dosage: 25 MG (25 MG, 1 IN 1 D), TRANSPLACENTAL
     Route: 064
     Dates: end: 20090714
  2. NEBIVOLOL HCL [Suspect]
     Dosage: TRANSPLACENTAL
     Route: 064
     Dates: end: 20090714

REACTIONS (3)
  - HYPOCALCAEMIA [None]
  - MATERNAL DRUGS AFFECTING FOETUS [None]
  - HYPOGLYCAEMIA NEONATAL [None]
